FAERS Safety Report 24036942 (Version 4)
Quarter: 2024Q3

REPORT INFORMATION
  Report Type: Spontaneous
  Country: US (occurrence: US)
  Receive Date: 20240701
  Receipt Date: 20240917
  Transmission Date: 20241017
  Serious: No
  Sender: KARYOPHARM THERAPEUTICS
  Company Number: US-KARYOPHARM-2024KPT001182

PATIENT

DRUGS (20)
  1. XPOVIO [Suspect]
     Active Substance: SELINEXOR
     Indication: Plasma cell myeloma
     Dosage: 100 MG, WEEKLY
     Route: 048
     Dates: start: 20240606
  2. XPOVIO [Suspect]
     Active Substance: SELINEXOR
     Dosage: 50 MG, WEEKLY
     Route: 048
     Dates: start: 2024
  3. ACYCLOVIR [Concomitant]
     Active Substance: ACYCLOVIR
  4. ASPIRIN [Concomitant]
     Active Substance: ASPIRIN
  5. DEXAMETHASONE [Concomitant]
     Active Substance: DEXAMETHASONE
  6. FENTANYL [Concomitant]
     Active Substance: FENTANYL\FENTANYL CITRATE
  7. FLUOCINONIDE [Concomitant]
     Active Substance: FLUOCINONIDE
  8. GEMFIBROZIL [Concomitant]
     Active Substance: GEMFIBROZIL
  9. HYDROCORTISONE [Concomitant]
     Active Substance: HYDROCORTISONE\HYDROCORTISONE ACETATE
  10. KLOR-CON M20 [Concomitant]
     Active Substance: POTASSIUM CHLORIDE
  11. LEVOFLOXACIN [Concomitant]
     Active Substance: LEVOFLOXACIN
  12. LORAZEPAM [Concomitant]
     Active Substance: LORAZEPAM
  13. MAGNESIUM [Concomitant]
     Active Substance: MAGNESIUM
  14. OMEPRAZOLE [Concomitant]
     Active Substance: OMEPRAZOLE
  15. OXYCODONE [Concomitant]
     Active Substance: OXYCODONE
  16. PENTAMIDINE ISETHIONATE [Concomitant]
     Active Substance: PENTAMIDINE ISETHIONATE
  17. PROCHLORPERAZINE [Concomitant]
     Active Substance: PROCHLORPERAZINE
  18. TEMAZEPAM [Concomitant]
     Active Substance: TEMAZEPAM
  19. VELCADE [Concomitant]
     Active Substance: BORTEZOMIB
  20. GLUTAMINE [Concomitant]
     Active Substance: GLUTAMINE

REACTIONS (10)
  - Hypoacusis [Unknown]
  - Ear disorder [Unknown]
  - Penile haemorrhage [Unknown]
  - Fatigue [Not Recovered/Not Resolved]
  - Decreased appetite [Not Recovered/Not Resolved]
  - Vomiting [Not Recovered/Not Resolved]
  - Constipation [Unknown]
  - Dehydration [Unknown]
  - Nausea [Not Recovered/Not Resolved]
  - Asthenia [Unknown]

NARRATIVE: CASE EVENT DATE: 20240601
